FAERS Safety Report 9934927 (Version 1)
Quarter: 2014Q1

REPORT INFORMATION
  Report Type: Spontaneous
  Country: US (occurrence: US)
  Receive Date: 20140228
  Receipt Date: 20140228
  Transmission Date: 20141002
  Serious: No
  Sender: FDA-Public Use
  Company Number: US-ASTRAZENECA-2013SE52855

PATIENT
  Age: 59 Year
  Sex: Male
  Weight: 103 kg

DRUGS (4)
  1. METOPROLOL SUCCINATE [Suspect]
     Indication: HEART RATE INCREASED
     Route: 048
     Dates: start: 200205
  2. DIOVAN [Suspect]
     Indication: HYPERTENSION
     Route: 065
     Dates: start: 200806
  3. LESCOL [Concomitant]
     Indication: BLOOD CHOLESTEROL ABNORMAL
     Route: 048
     Dates: start: 2002
  4. BENECAR [Concomitant]
     Dates: end: 200806

REACTIONS (3)
  - Hypersensitivity [Recovered/Resolved]
  - Dyspnoea [Recovered/Resolved]
  - Intentional drug misuse [Not Recovered/Not Resolved]
